FAERS Safety Report 11343249 (Version 3)
Quarter: 2015Q4

REPORT INFORMATION
  Report Type: Spontaneous
  Country: DE (occurrence: DE)
  Receive Date: 20150806
  Receipt Date: 20151023
  Transmission Date: 20160304
  Serious: Yes (Hospitalization, Other)
  Sender: FDA-Public Use
  Company Number: DE-ROCHE-1618261

PATIENT
  Age: 73 Year
  Sex: Male
  Weight: 73 kg

DRUGS (13)
  1. CHLORAMBUCIL [Concomitant]
     Active Substance: CHLORAMBUCIL
     Indication: CHRONIC LYMPHOCYTIC LEUKAEMIA
     Route: 065
     Dates: start: 20150512, end: 20150526
  2. TOREM [Concomitant]
     Active Substance: TORSEMIDE
  3. GAZYVARO [Suspect]
     Active Substance: OBINUTUZUMAB
     Route: 042
     Dates: start: 20150513, end: 20150513
  4. IRENAT [Suspect]
     Active Substance: POTASSIUM PERCHLORATE
     Indication: PRODUCT USED FOR UNKNOWN INDICATION
     Route: 065
  5. RANITIDIN [Concomitant]
     Active Substance: RANITIDINE HYDROCHLORIDE
     Route: 042
     Dates: start: 20150512, end: 20150519
  6. PREDNISOLON [Concomitant]
     Active Substance: PREDNISOLONE
     Route: 042
     Dates: start: 20150512, end: 20150519
  7. ALLOPURINOL. [Concomitant]
     Active Substance: ALLOPURINOL
     Route: 048
     Dates: start: 20150512, end: 20150519
  8. GAZYVARO [Suspect]
     Active Substance: OBINUTUZUMAB
     Indication: CHRONIC LYMPHOCYTIC LEUKAEMIA
     Route: 042
     Dates: start: 20150512, end: 20150512
  9. FENISTIL (GERMANY) [Concomitant]
     Route: 042
     Dates: start: 20150512, end: 20150519
  10. XIFAXAN [Concomitant]
     Active Substance: RIFAXIMIN
  11. BISOPROLOL [Concomitant]
     Active Substance: BISOPROLOL
     Route: 065
  12. PANTOZOL [Concomitant]
     Active Substance: PANTOPRAZOLE SODIUM
     Route: 065
  13. GAZYVARO [Suspect]
     Active Substance: OBINUTUZUMAB
     Route: 042
     Dates: start: 20150519, end: 20150519

REACTIONS (7)
  - Delirium [Recovered/Resolved]
  - Thrombocytopenia [Unknown]
  - Seizure [Recovered/Resolved]
  - Dementia [Unknown]
  - Hypothyroidism [Unknown]
  - Leukopenia [Unknown]
  - Epilepsy [Unknown]

NARRATIVE: CASE EVENT DATE: 20150520
